FAERS Safety Report 9503833 (Version 1)
Quarter: 2013Q1

REPORT INFORMATION
  Report Type: Spontaneous
  Country: US (occurrence: None)
  Receive Date: 20130225
  Receipt Date: 20130225
  Transmission Date: 20140127
  Serious: No
  Sender: FDA-Public Use
  Company Number: 366275

PATIENT
  Age: 46 Year
  Sex: Male

DRUGS (1)
  1. VICTOZA (LIRAGLUTIDE) [Suspect]
     Indication: TYPE 2 DIABETES MELLITUS
     Dosage: 1.2 MG, QD, SUBCUTANEOUS?
     Route: 058

REACTIONS (3)
  - Dizziness [None]
  - Nausea [None]
  - Injection site haemorrhage [None]
